FAERS Safety Report 8599044 (Version 2)
Quarter: 2013Q2

REPORT INFORMATION
  Report Type: Spontaneous
  Country: US (occurrence: US)
  Receive Date: 20120605
  Receipt Date: 20130617
  Transmission Date: 20140414
  Serious: Yes (Hospitalization, Disabling)
  Sender: FDA-Public Use
  Company Number: US-ASTRAZENECA-2012SE34507

PATIENT
  Age: 14833 Day
  Sex: Female

DRUGS (1)
  1. NEXIUM [Suspect]
     Indication: GASTROOESOPHAGEAL REFLUX DISEASE
     Route: 048
     Dates: start: 20111024

REACTIONS (8)
  - Arthritis [Unknown]
  - Osteoporosis [Unknown]
  - Multiple fractures [Unknown]
  - Gastroenteritis viral [Unknown]
  - Bone pain [Unknown]
  - Rheumatoid arthritis [Unknown]
  - Patellofemoral pain syndrome [Unknown]
  - Depression [Unknown]
